FAERS Safety Report 5794206-7 (Version None)
Quarter: 2008Q2

REPORT INFORMATION
  Report Type: 
  Country: None (occurrence: None)
  Receive Date: 20080627
  Receipt Date: 20080617
  Transmission Date: 20081010
  Serious: Yes (Hospitalization)
  Sender: FDA-Public Use
  Company Number: GB-PFIZER INC-2008051271

PATIENT
  Age: 42 Year
  Sex: Female
  Weight: 66.7 kg

DRUGS (6)
  1. CHANTIX [Suspect]
     Indication: SMOKING CESSATION THERAPY
     Route: 048
     Dates: start: 20080301, end: 20080523
  2. BRICANYL [Concomitant]
     Indication: ASTHMA
     Route: 055
  3. PULMICORT-100 [Concomitant]
     Indication: ASTHMA
     Route: 055
  4. FOLIC ACID [Concomitant]
     Dosage: DAILY DOSE:5MG-TEXT:DAILY
     Route: 048
  5. LEVOTHYROXINE SODIUM [Concomitant]
     Indication: HYPOTHYROIDISM
     Dosage: DAILY DOSE:350MCG-TEXT:DAILY
     Route: 048
  6. SULFASALAZINE [Concomitant]
     Indication: OSTEOARTHRITIS
     Route: 048

REACTIONS (1)
  - OSTEOARTHRITIS [None]
